FAERS Safety Report 14072260 (Version 1)
Quarter: 2017Q4

REPORT INFORMATION
  Report Type: Spontaneous
  Country: US (occurrence: US)
  Receive Date: 20171011
  Receipt Date: 20171011
  Transmission Date: 20180321
  Serious: Yes (Other)
  Sender: FDA-Public Use
  Company Number: US-AMGEN-USASP2017152748

PATIENT
  Age: 47 Year
  Sex: Female

DRUGS (25)
  1. HYDROCHLOROTHIAZIDE. [Suspect]
     Active Substance: HYDROCHLOROTHIAZIDE
     Indication: PRODUCT USED FOR UNKNOWN INDICATION
     Dosage: UNK
     Route: 065
  2. 5-FLUOROURACIL [Suspect]
     Active Substance: FLUOROURACIL
     Dosage: 800 MG, UNK
     Route: 042
     Dates: start: 20070220
  3. IRINOTECAN [Concomitant]
     Active Substance: IRINOTECAN
     Indication: BLADDER CANCER
     Dosage: UNK
  4. AVASTIN [Suspect]
     Active Substance: BEVACIZUMAB
     Dosage: 890 MG, UNK
     Route: 042
     Dates: start: 20070116
  5. AVASTIN [Suspect]
     Active Substance: BEVACIZUMAB
     Dosage: 890 MG, UNK
     Route: 042
     Dates: start: 20070307
  6. AVASTIN [Suspect]
     Active Substance: BEVACIZUMAB
     Dosage: 890 MG, UNK
     Route: 042
     Dates: start: 20070522
  7. BENADRYL [Concomitant]
     Active Substance: DIPHENHYDRAMINE HYDROCHLORIDE
     Dosage: 50 MG, UNK
     Dates: start: 20070102
  8. AVASTIN [Suspect]
     Active Substance: BEVACIZUMAB
     Dosage: 890 MG, UNK
     Route: 042
     Dates: start: 20070206
  9. AVASTIN [Suspect]
     Active Substance: BEVACIZUMAB
     Dosage: 890 MG, UNK
     Route: 042
     Dates: start: 20070410
  10. AVASTIN [Suspect]
     Active Substance: BEVACIZUMAB
     Dosage: 890 MG, UNK
     Route: 042
     Dates: start: 20070508
  11. 5-FLUOROURACIL [Suspect]
     Active Substance: FLUOROURACIL
     Dosage: 800 MG, UNK
     Route: 042
     Dates: start: 20070307
  12. LEUCOVORIN. [Concomitant]
     Active Substance: LEUCOVORIN
     Indication: BLADDER CANCER
     Dosage: 80 MG, UNK
     Route: 042
     Dates: start: 20070102
  13. TAGAMET [Concomitant]
     Active Substance: CIMETIDINE
     Dosage: 300 MG, UNK
     Dates: start: 20070116
  14. CAMPTOSAR [Concomitant]
     Active Substance: IRINOTECAN HYDROCHLORIDE
     Dosage: 250 MG, UNK
     Route: 042
     Dates: start: 20070102
  15. NEUPOGEN [Suspect]
     Active Substance: FILGRASTIM
     Indication: PRODUCT USED FOR UNKNOWN INDICATION
     Dosage: UNK
     Route: 065
  16. 5-FLUOROURACIL [Suspect]
     Active Substance: FLUOROURACIL
     Dosage: 800 MG, UNK
     Route: 042
     Dates: start: 20070116
  17. AVASTIN [Suspect]
     Active Substance: BEVACIZUMAB
     Dosage: 890 MG, UNK
     Route: 042
     Dates: start: 20070424
  18. 5-FLUOROURACIL [Suspect]
     Active Substance: FLUOROURACIL
     Dosage: 800 MG, UNK
     Route: 042
     Dates: start: 20070206
  19. AVASTIN [Suspect]
     Active Substance: BEVACIZUMAB
     Dosage: 890 MG, UNK
     Route: 042
     Dates: start: 20070320
  20. AVASTIN [Suspect]
     Active Substance: BEVACIZUMAB
     Dosage: 572 MG, UNK
     Route: 042
     Dates: start: 20170213
  21. DECADRON [Concomitant]
     Active Substance: DEXAMETHASONE
     Dosage: 10 MG, UNK
     Route: 042
     Dates: start: 20070102
  22. 5-FLUOROURACIL [Suspect]
     Active Substance: FLUOROURACIL
     Indication: BLADDER CANCER
     Dosage: 800 MG, UNK
     Route: 042
     Dates: start: 20070102
  23. AVASTIN [Suspect]
     Active Substance: BEVACIZUMAB
     Indication: BLADDER CANCER
     Dosage: 890 MG, UNK
     Route: 042
     Dates: start: 20070102
  24. AVASTIN [Suspect]
     Active Substance: BEVACIZUMAB
     Dosage: 890 MG, UNK
     Route: 042
     Dates: start: 20070220
  25. AVASTIN [Suspect]
     Active Substance: BEVACIZUMAB
     Dosage: 890 MG, UNK
     Route: 042
     Dates: start: 20070605

REACTIONS (20)
  - Balance disorder [Unknown]
  - Abdominal discomfort [Unknown]
  - Hepatic steatosis [Unknown]
  - Pain [Unknown]
  - Intentional product use issue [Unknown]
  - Tachycardia [Unknown]
  - Menopausal symptoms [Unknown]
  - Platelet count decreased [Unknown]
  - Headache [Unknown]
  - White blood cell count decreased [Unknown]
  - Vomiting [Unknown]
  - Fatigue [Unknown]
  - Nausea [Unknown]
  - Leukopenia [Unknown]
  - Off label use [Unknown]
  - Urinary retention postoperative [Unknown]
  - Musculoskeletal chest pain [Unknown]
  - Diarrhoea [Unknown]
  - Bone pain [Unknown]
  - Constipation [Unknown]
